FAERS Safety Report 21782778 (Version 15)
Quarter: 2025Q2

REPORT INFORMATION
  Report Type: Spontaneous
  Country: JP (occurrence: JP)
  Receive Date: 20221227
  Receipt Date: 20250625
  Transmission Date: 20250716
  Serious: Yes (Other)
  Sender: JOHNSON AND JOHNSON
  Company Number: JP-JNJFOC-20221250998

PATIENT
  Age: 33 Year
  Sex: Male
  Weight: 64 kg

DRUGS (14)
  1. RILPIVIRINE [Suspect]
     Active Substance: RILPIVIRINE
     Indication: HIV infection
     Route: 030
     Dates: start: 20221213, end: 20221213
  2. RILPIVIRINE [Suspect]
     Active Substance: RILPIVIRINE
     Route: 030
     Dates: start: 20230110, end: 20230110
  3. RILPIVIRINE [Suspect]
     Active Substance: RILPIVIRINE
     Route: 030
     Dates: start: 2023, end: 2023
  4. RILPIVIRINE [Suspect]
     Active Substance: RILPIVIRINE
     Route: 030
     Dates: start: 20230710
  5. VOCABRIA [Suspect]
     Active Substance: CABOTEGRAVIR SODIUM
     Indication: HIV infection
     Route: 030
     Dates: start: 20221213, end: 20221213
  6. VOCABRIA [Suspect]
     Active Substance: CABOTEGRAVIR SODIUM
     Route: 030
     Dates: start: 20230110, end: 20230110
  7. VOCABRIA [Suspect]
     Active Substance: CABOTEGRAVIR SODIUM
     Route: 030
     Dates: start: 2023, end: 2023
  8. VOCABRIA [Suspect]
     Active Substance: CABOTEGRAVIR SODIUM
     Route: 030
     Dates: start: 20230710
  9. VOCABRIA [Suspect]
     Active Substance: CABOTEGRAVIR SODIUM
     Route: 030
  10. VOCABRIA [Suspect]
     Active Substance: CABOTEGRAVIR SODIUM
     Dosage: 600MG
     Route: 030
     Dates: end: 20221213
  11. ZOLPIDEM TARTRATE [Concomitant]
     Active Substance: ZOLPIDEM TARTRATE
     Indication: Product used for unknown indication
     Route: 048
  12. EPIVIR [Concomitant]
     Active Substance: LAMIVUDINE
     Indication: Product used for unknown indication
     Route: 048
  13. ATOMOXETINE HYDROCHLORIDE [Concomitant]
     Active Substance: ATOMOXETINE HYDROCHLORIDE
     Indication: Attention deficit hyperactivity disorder
     Route: 048
  14. ABACAVIR SULFATE\DOLUTEGRAVIR SODIUM\LAMIVUDINE [Concomitant]
     Active Substance: ABACAVIR SULFATE\DOLUTEGRAVIR SODIUM\LAMIVUDINE
     Indication: Product used for unknown indication

REACTIONS (19)
  - Injection site pain [Recovering/Resolving]
  - Injection site inflammation [Recovered/Resolved]
  - Myositis [Recovered/Resolved]
  - Injection site mass [Recovered/Resolved]
  - Drug-induced liver injury [Recovered/Resolved]
  - Injection site swelling [Recovered/Resolved]
  - Hepatitis B reactivation [Recovered/Resolved]
  - Hepatitis E [Recovered/Resolved]
  - Aspartate aminotransferase increased [Recovered/Resolved]
  - Alanine aminotransferase increased [Recovered/Resolved]
  - Hepatitis acute [Recovered/Resolved]
  - Acute hepatitis B [Recovered/Resolved]
  - Presyncope [Recovered/Resolved]
  - Tachycardia [Recovered/Resolved]
  - Nausea [Recovered/Resolved]
  - Hyperhidrosis [Recovered/Resolved]
  - Physical deconditioning [Recovered/Resolved]
  - Jaundice [Recovered/Resolved]
  - Abdominal distension [Recovered/Resolved]

NARRATIVE: CASE EVENT DATE: 20221213
